FAERS Safety Report 13055821 (Version 1)
Quarter: 2016Q4

REPORT INFORMATION
  Report Type: Spontaneous
  Country: US (occurrence: US)
  Receive Date: 20161222
  Receipt Date: 20161222
  Transmission Date: 20170207
  Serious: Yes (Other)
  Sender: FDA-Public Use
  Company Number: US-BAYER-2016-237409

PATIENT
  Age: 83 Year
  Sex: Male

DRUGS (13)
  1. VITAMIN D [Concomitant]
     Active Substance: CHOLECALCIFEROL
  2. COQ10 [Concomitant]
     Active Substance: UBIDECARENONE
  3. PLAVIX [Concomitant]
     Active Substance: CLOPIDOGREL BISULFATE
  4. FISH OIL [Concomitant]
     Active Substance: FISH OIL
  5. NEXAVAR [Suspect]
     Active Substance: SORAFENIB
     Indication: METASTASES TO LUNG
  6. NEXAVAR [Suspect]
     Active Substance: SORAFENIB
     Indication: METASTASES TO LIVER
  7. OMEPRAZOLE. [Concomitant]
     Active Substance: OMEPRAZOLE
  8. NEXAVAR [Suspect]
     Active Substance: SORAFENIB
     Indication: RENAL CANCER STAGE IV
     Dosage: UNK
     Dates: start: 201607, end: 201609
  9. BABY ASPIRIN [Concomitant]
     Active Substance: ASPIRIN
  10. SUTENT [Concomitant]
     Active Substance: SUNITINIB MALATE
     Dosage: 50 MG, 28 DAYS ON 14 DAYS OFF
     Dates: start: 20161022
  11. KIONEX [Concomitant]
     Active Substance: SODIUM POLYSTYRENE SULFONATE
  12. RENVELA [Concomitant]
     Active Substance: SEVELAMER CARBONATE
  13. ANTIEMETICS AND ANTINAUSEANTS [Concomitant]
     Active Substance: UNSPECIFIED INGREDIENT
     Indication: PROCEDURAL NAUSEA

REACTIONS (5)
  - Metastases to lung [None]
  - Drug ineffective [None]
  - Metastases to bone [None]
  - Pruritus [None]
  - Metastases to liver [None]

NARRATIVE: CASE EVENT DATE: 2016
